FAERS Safety Report 17739414 (Version 1)
Quarter: 2020Q2

REPORT INFORMATION
  Report Type: Spontaneous
  Country: FR (occurrence: FR)
  Receive Date: 20200504
  Receipt Date: 20200504
  Transmission Date: 20200714
  Serious: Yes (Hospitalization)
  Sender: FDA-Public Use
  Company Number: FR-TEVA-2020-FR-1229825

PATIENT
  Age: 66 Year
  Sex: Male

DRUGS (3)
  1. OFLOXACINE [Suspect]
     Active Substance: OFLOXACIN
     Route: 065
  2. PERMIXON [Suspect]
     Active Substance: HERBALS\SAW PALMETTO
     Route: 048
  3. IMATINIB (MESILATE D^) [Suspect]
     Active Substance: IMATINIB MESYLATE
     Indication: NEOPLASM MALIGNANT
     Dosage: 1 DOSAGE FORMS
     Route: 048
     Dates: start: 20200304, end: 20200403

REACTIONS (2)
  - Eosinophilia [Not Recovered/Not Resolved]
  - Agranulocytosis [Not Recovered/Not Resolved]

NARRATIVE: CASE EVENT DATE: 20200316
